FAERS Safety Report 18933403 (Version 3)
Quarter: 2023Q2

REPORT INFORMATION
  Report Type: Spontaneous
  Country: US (occurrence: US)
  Receive Date: 20210224
  Receipt Date: 20230504
  Transmission Date: 20230721
  Serious: Yes (Hospitalization, Other)
  Sender: FDA-Public Use
  Company Number: US-GILEAD-2021-0517975

PATIENT
  Sex: Male
  Weight: 77.098 kg

DRUGS (59)
  1. ATRIPLA [Suspect]
     Active Substance: EFAVIRENZ\EMTRICITABINE\TENOFOVIR DISOPROXIL FUMARATE
     Indication: HIV infection
     Dosage: UNK
     Route: 048
     Dates: start: 2006, end: 201410
  2. ATRIPLA [Suspect]
     Active Substance: EFAVIRENZ\EMTRICITABINE\TENOFOVIR DISOPROXIL FUMARATE
     Dosage: UNK
     Route: 048
     Dates: start: 2011, end: 2017
  3. COMPLERA [Suspect]
     Active Substance: EMTRICITABINE\RILPIVIRINE HYDROCHLORIDE\TENOFOVIR DISOPROXIL FUMARATE
     Indication: HIV infection
     Dosage: UNK
     Route: 048
     Dates: start: 2006
  4. COMPLERA [Suspect]
     Active Substance: EMTRICITABINE\RILPIVIRINE HYDROCHLORIDE\TENOFOVIR DISOPROXIL FUMARATE
     Dosage: UNK
     Route: 048
     Dates: start: 2017, end: 202105
  5. COMPLERA [Suspect]
     Active Substance: EMTRICITABINE\RILPIVIRINE HYDROCHLORIDE\TENOFOVIR DISOPROXIL FUMARATE
     Dosage: UNK
     Route: 048
     Dates: start: 201410, end: 201510
  6. BIKTARVY [Concomitant]
     Active Substance: BICTEGRAVIR SODIUM\EMTRICITABINE\TENOFOVIR ALAFENAMIDE FUMARATE
  7. TRIUMEQ [Concomitant]
     Active Substance: ABACAVIR SULFATE\DOLUTEGRAVIR SODIUM\LAMIVUDINE
  8. AFLURIA NOS [Concomitant]
     Active Substance: INFLUENZA VIRUS VACCINE TRIVALENT TYPE A+B AFLURIA
  9. AIMOVIG [Concomitant]
     Active Substance: ERENUMAB-AOOE
  10. AMITRIPTYLINE [Concomitant]
     Active Substance: AMITRIPTYLINE
  11. ASPIRIN [Concomitant]
     Active Substance: ASPIRIN
  12. ATORVASTATIN [Concomitant]
     Active Substance: ATORVASTATIN
  13. BELBUCA [Concomitant]
     Active Substance: BUPRENORPHINE HYDROCHLORIDE
  14. BUSPIRONE [Concomitant]
     Active Substance: BUSPIRONE HYDROCHLORIDE
  15. BUTALBITAL [Concomitant]
     Active Substance: BUTALBITAL
  16. CEPHALEXIN [Concomitant]
     Active Substance: CEPHALEXIN
  17. CIPROFLOXACIN [Concomitant]
     Active Substance: CIPROFLOXACIN
  18. CITALOPRAM [Concomitant]
     Active Substance: CITALOPRAM HYDROBROMIDE
  19. CLONAZEPAM [Concomitant]
     Active Substance: CLONAZEPAM
  20. CYCLOBENZAPRINE [Concomitant]
     Active Substance: CYCLOBENZAPRINE
  21. DIAZEPAM [Concomitant]
     Active Substance: DIAZEPAM
  22. DICLOFENAC [Concomitant]
     Active Substance: DICLOFENAC
  23. ESOMEPRAZOLE [Concomitant]
     Active Substance: ESOMEPRAZOLE
  24. PHENOLPHTHALEIN [Concomitant]
     Active Substance: PHENOLPHTHALEIN
  25. FAMOTIDINE [Concomitant]
     Active Substance: FAMOTIDINE
  26. FLUOXETINE [Concomitant]
     Active Substance: FLUOXETINE HYDROCHLORIDE
  27. GAVILYTE - C [Concomitant]
     Active Substance: POLYETHYLENE GLYCOL 3350\POTASSIUM CHLORIDE\SODIUM BICARBONATE\SODIUM CHLORIDE\SODIUM SULFATE
  28. HYDROCODONE [Concomitant]
     Active Substance: HYDROCODONE
  29. HYDROXYCHLOROQUINE [Concomitant]
     Active Substance: HYDROXYCHLOROQUINE
  30. LIDOCAINE [Concomitant]
     Active Substance: LIDOCAINE
  31. MAGNESIUM OXIDE [Concomitant]
     Active Substance: MAGNESIUM OXIDE
  32. METHYLPREDNISOLONE [Concomitant]
     Active Substance: METHYLPREDNISOLONE
  33. NAPROXEN [Concomitant]
     Active Substance: NAPROXEN
  34. NEXIUM I.V. [Concomitant]
     Active Substance: ESOMEPRAZOLE SODIUM
  35. OMEPRAZOLE [Concomitant]
     Active Substance: OMEPRAZOLE
  36. ONDANSETRON [Concomitant]
     Active Substance: ONDANSETRON
  37. OXYCODONE [Concomitant]
     Active Substance: OXYCODONE
  38. PANTOPRAZOLE [Concomitant]
     Active Substance: PANTOPRAZOLE
  39. POLYETHYLENE GLYCOL 400 [Concomitant]
     Active Substance: POLYETHYLENE GLYCOL 400
  40. PREDNISONE [Concomitant]
     Active Substance: PREDNISONE
  41. SERTRALINE [Concomitant]
     Active Substance: SERTRALINE HYDROCHLORIDE
  42. SILDENAFIL [Concomitant]
     Active Substance: SILDENAFIL
  43. SUCRALFATE [Concomitant]
     Active Substance: SUCRALFATE
  44. SULFAMETHOXAZOLE [Concomitant]
     Active Substance: SULFAMETHOXAZOLE
  45. SUMATRIPTAN [Concomitant]
     Active Substance: SUMATRIPTAN
  46. TAMSULOSIN [Concomitant]
     Active Substance: TAMSULOSIN
  47. TIZANIDINE [Concomitant]
     Active Substance: TIZANIDINE
  48. TOPIRAMATE [Concomitant]
     Active Substance: TOPIRAMATE
  49. TRAMADOL [Concomitant]
     Active Substance: TRAMADOL
  50. TRIAMCINOLONE [Concomitant]
     Active Substance: TRIAMCINOLONE
  51. UBRELVY [Concomitant]
     Active Substance: UBROGEPANT
  52. VITAFUSION MULTIVITES [Concomitant]
  53. VITAMIN B2 [Concomitant]
     Active Substance: RIBOFLAVIN
  54. VITAMIN D2 [Concomitant]
     Active Substance: ERGOCALCIFEROL
  55. ZOLOFT [Concomitant]
     Active Substance: SERTRALINE HYDROCHLORIDE
  56. FOLIC ACID [Concomitant]
     Active Substance: FOLIC ACID
  57. LYRICA [Concomitant]
     Active Substance: PREGABALIN
  58. CYMBALTA [Concomitant]
     Active Substance: DULOXETINE HYDROCHLORIDE
  59. GABAPENTIN [Concomitant]
     Active Substance: GABAPENTIN

REACTIONS (18)
  - Chronic kidney disease [Not Recovered/Not Resolved]
  - Renal failure [Not Recovered/Not Resolved]
  - Emotional distress [Not Recovered/Not Resolved]
  - Anhedonia [Not Recovered/Not Resolved]
  - Blood urine present [Unknown]
  - Dysuria [Unknown]
  - Urinary tract infection [Unknown]
  - Osteopenia [Not Recovered/Not Resolved]
  - Intervertebral disc degeneration [Not Recovered/Not Resolved]
  - Mobility decreased [Not Recovered/Not Resolved]
  - Quality of life decreased [Not Recovered/Not Resolved]
  - Skeletal injury [Unknown]
  - Degenerative bone disease [Unknown]
  - Post-traumatic stress disorder [Not Recovered/Not Resolved]
  - Anxiety [Not Recovered/Not Resolved]
  - Pain [Not Recovered/Not Resolved]
  - Blood creatinine increased [Not Recovered/Not Resolved]
  - Foot fracture [Not Recovered/Not Resolved]

NARRATIVE: CASE EVENT DATE: 20090101
